FAERS Safety Report 7232470-8 (Version None)
Quarter: 2011Q1

REPORT INFORMATION
  Report Type: 
  Country: None (occurrence: None)
  Receive Date: 20110105
  Receipt Date: 20101223
  Transmission Date: 20110831
  Serious: Yes (Hospitalization)
  Sender: FDA-Public Use
  Company Number: 2010P1003528

PATIENT
  Sex: Male

DRUGS (4)
  1. WARFARIN SODIUM TABLETS USP 5MG (NO PREF. NAME) [Suspect]
     Indication: THROMBOSIS
     Dosage: 5 MG;QOD; PO, 10 MG; QOD; PO
     Route: 048
     Dates: start: 20060101
  2. LISINOPRIL [Concomitant]
  3. PREDNISONE [Concomitant]
  4. METHOTREXATE [Concomitant]

REACTIONS (6)
  - FEAR OF DEATH [None]
  - EATING DISORDER [None]
  - ASTHENIA [None]
  - DRY MOUTH [None]
  - MIDDLE INSOMNIA [None]
  - ANAPHYLACTIC REACTION [None]
